FAERS Safety Report 16932542 (Version 3)
Quarter: 2020Q1

REPORT INFORMATION
  Report Type: Spontaneous
  Country: JP (occurrence: JP)
  Receive Date: 20191017
  Receipt Date: 20200115
  Transmission Date: 20200409
  Serious: Yes (Death, Hospitalization, Other)
  Sender: FDA-Public Use
  Company Number: JP-ASTRAZENECA-2019SF45580

PATIENT
  Age: 18608 Day
  Weight: 57 kg

DRUGS (6)
  1. FENTOS [Concomitant]
     Active Substance: FENTANYL
     Indication: BREAST CANCER
     Route: 062
     Dates: start: 20190715, end: 20191006
  2. BISOLVON [Concomitant]
     Active Substance: BROMHEXINE HYDROCHLORIDE
     Indication: BREAST CANCER
     Route: 048
  3. NEXIUM [Concomitant]
     Active Substance: ESOMEPRAZOLE MAGNESIUM
     Route: 048
     Dates: start: 20190827, end: 20191006
  4. DECADRON [Suspect]
     Active Substance: DEXAMETHASONE
     Indication: BREAST CANCER
     Route: 048
     Dates: start: 20190826, end: 20191006
  5. LYNPARZA [Suspect]
     Active Substance: OLAPARIB
     Indication: BREAST CANCER
     Route: 048
     Dates: start: 20190726, end: 20191006
  6. DECADRON [Suspect]
     Active Substance: DEXAMETHASONE
     Indication: BREAST CANCER
     Route: 048
     Dates: start: 20190822, end: 20190825

REACTIONS (4)
  - Pneumocystis jirovecii pneumonia [Fatal]
  - Respiratory failure [Fatal]
  - Lymphocyte count decreased [Not Recovered/Not Resolved]
  - Metastases to meninges [Recovering/Resolving]

NARRATIVE: CASE EVENT DATE: 20190819
